FAERS Safety Report 20601150 (Version 1)
Quarter: 2022Q1

REPORT INFORMATION
  Report Type: Report from Study
  Country: MX (occurrence: MX)
  Receive Date: 20220316
  Receipt Date: 20220316
  Transmission Date: 20220423
  Serious: Yes (Hospitalization, Other)
  Sender: FDA-Public Use
  Company Number: MX-UCBSA-2022012453

PATIENT
  Age: 0 Year
  Sex: Female
  Weight: 7.3 kg

DRUGS (7)
  1. LEVETIRACETAM [Suspect]
     Active Substance: LEVETIRACETAM
     Indication: Seizure
     Dosage: UNK, 2X/DAY (BID)
     Route: 048
     Dates: start: 202010
  2. LEVETIRACETAM [Suspect]
     Active Substance: LEVETIRACETAM
     Dosage: DOSE CHANGES BASED ON BODY WEIGHT
     Route: 048
  3. LEVETIRACETAM [Suspect]
     Active Substance: LEVETIRACETAM
     Dosage: 1 MILLILITER, 2X/DAY (BID)
     Route: 048
     Dates: start: 2021
  4. UNAMOL [Concomitant]
     Indication: Gastrooesophageal reflux disease
  5. LASFLIGEN [Concomitant]
     Indication: Lung disorder
  6. POLYVISOL [ASCORBIC ACID;CYANOCOBALAMIN;ERGOCALCIFEROL;NICOTINAMIDE;PY [Concomitant]
     Indication: Vitamin supplementation
  7. CISAPRIDE [Concomitant]
     Active Substance: CISAPRIDE
     Indication: Product used for unknown indication

REACTIONS (4)
  - Pyrexia [Unknown]
  - Cardiac disorder [Unknown]
  - Therapeutic product effect incomplete [Unknown]
  - Off label use [Unknown]

NARRATIVE: CASE EVENT DATE: 20201001
